FAERS Safety Report 8008095-3 (Version None)
Quarter: 2011Q4

REPORT INFORMATION
  Report Type: 
  Country: None (occurrence: None)
  Receive Date: 20111227
  Receipt Date: 20111222
  Transmission Date: 20120403
  Serious: Yes (Other)
  Sender: FDA-Public Use
  Company Number: PHHY2011DE111841

PATIENT
  Sex: Female
  Weight: 67 kg

DRUGS (3)
  1. INTERFERON BETA-1B [Suspect]
     Indication: MULTIPLE SCLEROSIS
     Dosage: 250 MCG/ML, 1 ML EVERY OTHER DAY.
     Route: 058
     Dates: start: 20101213
  2. BIFITERAL [Concomitant]
  3. SPASMOLYT [Concomitant]

REACTIONS (1)
  - MENINGIOMA [None]
